FAERS Safety Report 18431084 (Version 1)
Quarter: 2020Q4

REPORT INFORMATION
  Report Type: Spontaneous
  Country: US (occurrence: US)
  Receive Date: 20201027
  Receipt Date: 20201027
  Transmission Date: 20210114
  Serious: No
  Sender: FDA-Public Use
  Company Number: None

PATIENT
  Age: 63 Year
  Sex: Female
  Weight: 91 kg

DRUGS (1)
  1. CARBOPLATIN (CARBOPLATIN 450MG/VIL INJ) [Suspect]
     Active Substance: CARBOPLATIN
     Indication: OVARIAN CANCER
     Dates: start: 20190306, end: 20200909

REACTIONS (9)
  - Hypoxia [None]
  - Chills [None]
  - Flushing [None]
  - Nausea [None]
  - Vomiting [None]
  - Hypertension [None]
  - Tachypnoea [None]
  - Tachycardia [None]
  - Infusion related reaction [None]

NARRATIVE: CASE EVENT DATE: 20200909
